FAERS Safety Report 9331215 (Version 2)
Quarter: 2013Q4

REPORT INFORMATION
  Report Type: Spontaneous
  Country: US (occurrence: US)
  Receive Date: 20130605
  Receipt Date: 20131120
  Transmission Date: 20140711
  Serious: Yes (Hospitalization)
  Sender: FDA-Public Use
  Company Number: US-B.I. PHARMACEUTICALS,INC./RIDGEFIELD-2013-BI-15741BP

PATIENT
  Sex: Female
  Weight: 72.57 kg

DRUGS (12)
  1. PRADAXA [Suspect]
     Indication: ANTICOAGULANT THERAPY
     Dates: start: 20110803, end: 20111229
  2. PRADAXA [Suspect]
     Indication: ATRIAL FIBRILLATION
  3. PRAVASTATIN SODIUM [Concomitant]
     Dosage: 40 MG
     Route: 048
  4. LISINOPRIL [Concomitant]
     Dosage: 40 MG
     Route: 048
  5. ATENOLOL [Concomitant]
     Dosage: 25 MG
     Route: 048
  6. LEVOTHYROXINE SODIUM [Concomitant]
     Dosage: 75 MCG
     Route: 048
     Dates: start: 2000, end: 2012
  7. HYDROCHLOROTHIAZIDE [Concomitant]
     Dosage: 25 MG
     Route: 048
  8. SPIRONOLACTONE [Concomitant]
     Dosage: 25 MG
     Route: 048
  9. PLAVIX [Concomitant]
     Dosage: 75 MG
     Route: 048
  10. KLOR-CON [Concomitant]
  11. ZITHROMAX [Concomitant]
     Dosage: 250 MG
     Route: 048
  12. TYLENOL WITH CODEINE #3 [Concomitant]

REACTIONS (6)
  - Upper gastrointestinal haemorrhage [Unknown]
  - Mallory-Weiss syndrome [Unknown]
  - Coagulopathy [Unknown]
  - Renal failure acute [Unknown]
  - Haemorrhagic anaemia [Unknown]
  - Peptic ulcer [Unknown]
